FAERS Safety Report 13265563 (Version 1)
Quarter: 2017Q1

REPORT INFORMATION
  Report Type: Spontaneous
  Country: US (occurrence: US)
  Receive Date: 20170223
  Receipt Date: 20170223
  Transmission Date: 20170428
  Serious: No
  Sender: FDA-Public Use
  Company Number: US-ELI_LILLY_AND_COMPANY-US201702008721

PATIENT
  Sex: Female

DRUGS (3)
  1. HUMALOG [Suspect]
     Active Substance: INSULIN LISPRO
     Indication: TYPE 2 DIABETES MELLITUS
     Dosage: 4 U, UNKNOWN
     Route: 065
     Dates: start: 201610, end: 201702
  2. ASTATIN                            /01326102/ [Concomitant]
     Active Substance: ATORVASTATIN CALCIUM
  3. LANTUS [Concomitant]
     Active Substance: INSULIN GLARGINE

REACTIONS (4)
  - Drug ineffective [Unknown]
  - Blood glucose increased [Unknown]
  - Weight increased [Unknown]
  - Incorrect dose administered [Unknown]
